FAERS Safety Report 4530005-1 (Version None)
Quarter: 2004Q4

REPORT INFORMATION
  Report Type: 
  Country: None (occurrence: None)
  Receive Date: 20041214
  Receipt Date: 20041201
  Transmission Date: 20050328
  Serious: Yes (Other)
  Sender: FDA-Public Use
  Company Number: 2004101531

PATIENT
  Age: 62 Year
  Sex: Male
  Weight: 76.2043 kg

DRUGS (6)
  1. CELEBREX [Suspect]
     Indication: ARTHRITIS
     Dosage: 400 MG, (200 MG, 2 IN 1 D), ORAL
     Route: 048
  2. THEOPHYLLINE [Concomitant]
  3. SALBUTAMOL (SALBUTAMOL) [Concomitant]
  4. SERETIDE MITE (FLUTICASONE PROPIONATE, SALMETEROL XINAFOATE) [Concomitant]
  5. CLOBETASOL (CLOBETASOL) [Concomitant]
  6. ASPIRIN [Concomitant]

REACTIONS (2)
  - CORONARY ARTERY OCCLUSION [None]
  - PNEUMONIA [None]
